FAERS Safety Report 19026714 (Version 3)
Quarter: 2021Q2

REPORT INFORMATION
  Report Type: Spontaneous
  Country: BR (occurrence: BR)
  Receive Date: 20210318
  Receipt Date: 20210427
  Transmission Date: 20210717
  Serious: Yes (Other)
  Sender: FDA-Public Use
  Company Number: BR-PFIZER INC-2021263667

PATIENT
  Sex: Male

DRUGS (3)
  1. ZYVOX [Suspect]
     Active Substance: LINEZOLID
     Dosage: UNK
  2. ZYVOX [Suspect]
     Active Substance: LINEZOLID
     Dosage: UNK
  3. ZYVOX [Suspect]
     Active Substance: LINEZOLID
     Dosage: 600 MG, 2X/DAY (EVERY 12 HOURS)

REACTIONS (3)
  - Cellulitis [Not Recovered/Not Resolved]
  - Expired product administered [Unknown]
  - Sepsis [Unknown]

NARRATIVE: CASE EVENT DATE: 202008
